FAERS Safety Report 6244981-2 (Version None)
Quarter: 2009Q2

REPORT INFORMATION
  Report Type: 
  Country: None (occurrence: None)
  Receive Date: 20090623
  Receipt Date: 20090623
  Transmission Date: 20091009
  Serious: Yes (Other)
  Sender: FDA-Public Use
  Company Number: None

PATIENT
  Sex: Female
  Weight: 85.27 kg

DRUGS (6)
  1. ATRIPLA [Suspect]
     Indication: HIV INFECTION
     Dosage: 1 TAB QHS PO
     Route: 048
     Dates: start: 20081003, end: 20090123
  2. COMBIVIR [Concomitant]
  3. VIRACEPT [Concomitant]
  4. ALBUTEROL [Concomitant]
  5. TRIAMCINOLONE [Concomitant]
  6. DIPHENHYDRAMINE HCL [Concomitant]

REACTIONS (3)
  - HEPATIC STEATOSIS [None]
  - PRURITUS [None]
  - RASH [None]
